FAERS Safety Report 13573849 (Version 1)
Quarter: 2017Q2

REPORT INFORMATION
  Report Type: Spontaneous
  Country: US (occurrence: US)
  Receive Date: 20170523
  Receipt Date: 20170523
  Transmission Date: 20170830
  Serious: Yes (Hospitalization)
  Sender: FDA-Public Use
  Company Number: US-IMPAX LABORATORIES, INC-2017-IPXL-01405

PATIENT
  Age: 78 Year
  Sex: Male

DRUGS (1)
  1. RYTARY [Suspect]
     Active Substance: CARBIDOPA\LEVODOPA
     Indication: PARKINSON^S DISEASE
     Dosage: 23.75/95MG,3 CAPSULES, 3/DAY
     Route: 048

REACTIONS (2)
  - Memory impairment [Unknown]
  - Fall [Unknown]

NARRATIVE: CASE EVENT DATE: 201701
